FAERS Safety Report 18465365 (Version 1)
Quarter: 2020Q4

REPORT INFORMATION
  Report Type: Spontaneous
  Country: US (occurrence: US)
  Receive Date: 20201105
  Receipt Date: 20201105
  Transmission Date: 20210114
  Serious: Yes (Other)
  Sender: FDA-Public Use
  Company Number: US-SUN PHARMACEUTICAL INDUSTRIES LTD-2020R1-266309

PATIENT
  Age: 54 Year
  Sex: Female

DRUGS (1)
  1. LITHIUM. [Suspect]
     Active Substance: LITHIUM
     Indication: SCHIZOPHRENIA
     Dosage: UNK
     Route: 065

REACTIONS (7)
  - Metabolic acidosis [Unknown]
  - Acute kidney injury [Unknown]
  - Seizure [Unknown]
  - Respiratory failure [Unknown]
  - Toxicity to various agents [Unknown]
  - Antipsychotic drug level increased [Unknown]
  - Encephalopathy [Recovering/Resolving]
